FAERS Safety Report 9377726 (Version 1)
Quarter: 2013Q3

REPORT INFORMATION
  Report Type: Spontaneous
  Country: AU (occurrence: AU)
  Receive Date: 20130701
  Receipt Date: 20130701
  Transmission Date: 20140515
  Serious: Yes (Other)
  Sender: FDA-Public Use
  Company Number: AU-EISAI INC-E3810-06499-SPO-AU

PATIENT
  Age: 92 Year
  Sex: Female

DRUGS (6)
  1. PARIET (RABEPRAZOLE) [Suspect]
     Route: 048
     Dates: start: 200905, end: 2013
  2. CITRACAL [Concomitant]
  3. ASTRIX [Concomitant]
  4. FOSAMAX [Concomitant]
  5. NOTEN [Concomitant]
  6. PARACETAMOL [Concomitant]

REACTIONS (2)
  - Renal failure chronic [Recovering/Resolving]
  - Blood creatinine increased [Recovering/Resolving]
